FAERS Safety Report 10866100 (Version 1)
Quarter: 2015Q1

REPORT INFORMATION
  Report Type: Spontaneous
  Country: KR (occurrence: None)
  Receive Date: 20150219
  Receipt Date: 20150219
  Transmission Date: 20150721
  Serious: Yes (Death)
  Sender: FDA-Public Use
  Company Number: INT_00698_2015

PATIENT
  Age: 48 Year
  Sex: Female

DRUGS (2)
  1. CARBOPLATIN (CARBOPLATIN) [Suspect]
     Active Substance: CARBOPLATIN
     Indication: UTERINE LEIOMYOSARCOMA
     Dosage: AUC 5 OVER 30 MIN ON DAY 1, EVERY 21 DAYS
     Route: 042
  2. PACLITAXEL (PACLITAXEL) (HQ SPECIALTY) [Suspect]
     Active Substance: PACLITAXEL
     Indication: UTERINE LEIOMYOSARCOMA
     Dosage: 3 HR INFUSION OVER 30 MIN ON DAY 1, EVERY 21 DAYS
     Route: 042

REACTIONS (2)
  - Septic shock [None]
  - Toxicity to various agents [None]
